FAERS Safety Report 17437397 (Version 3)
Quarter: 2020Q1

REPORT INFORMATION
  Report Type: Report from Study
  Country: None (occurrence: TR)
  Receive Date: 20200219
  Receipt Date: 20200317
  Transmission Date: 20200409
  Serious: Yes (Hospitalization)
  Sender: FDA-Public Use
  Company Number: TR-ABBVIE-20K-161-3279039-00

PATIENT
  Sex: Female
  Weight: 61 kg

DRUGS (6)
  1. LEPONEX [Concomitant]
     Active Substance: CLOZAPINE
     Indication: DEPRESSION
     Route: 048
     Dates: start: 2015
  2. PK-MERZ [Concomitant]
     Active Substance: AMANTADINE
     Indication: PARKINSON^S DISEASE
     Route: 048
     Dates: start: 2015
  3. DUODOPA [Suspect]
     Active Substance: CARBIDOPA\LEVODOPA
     Indication: PARKINSON^S DISEASE
     Dosage: MD (ML): 3.40CD(ML): 2.00 ED(ML): 1.20
     Route: 050
     Dates: start: 20191113, end: 20191125
  4. DUODOPA [Suspect]
     Active Substance: CARBIDOPA\LEVODOPA
     Dosage: MD (ML): 3.40 CD(ML): 2.00 ED (ML): 1.20
     Route: 050
  5. DOPALEVO [Concomitant]
     Indication: PARKINSON^S DISEASE
     Route: 048
     Dates: start: 201910
  6. MADOPAR [Concomitant]
     Active Substance: BENSERAZIDE HYDROCHLORIDE\LEVODOPA
     Indication: PARKINSON^S DISEASE
     Dosage: FREQUENCY TEXT -1X3
     Route: 048
     Dates: start: 201910

REACTIONS (3)
  - C-reactive protein increased [Recovered/Resolved]
  - Stoma site infection [Recovered/Resolved]
  - Stoma site discharge [Recovered/Resolved]
